FAERS Safety Report 8695747 (Version 3)
Quarter: 2013Q4

REPORT INFORMATION
  Report Type: Spontaneous
  Country: US (occurrence: US)
  Receive Date: 20120731
  Receipt Date: 20131031
  Transmission Date: 20140711
  Serious: Yes (Hospitalization)
  Sender: FDA-Public Use
  Company Number: US-009507513-1207USA010090

PATIENT
  Sex: Male

DRUGS (3)
  1. SUSTIVA [Suspect]
     Dosage: 400 MG, QPM
     Route: 048
  2. ISENTRESS [Suspect]
     Dosage: UNK
     Route: 048
  3. ZIAGEN [Suspect]
     Dosage: 300 MG, BID
     Route: 048

REACTIONS (1)
  - Liver disorder [Unknown]
